FAERS Safety Report 8076725-6 (Version None)
Quarter: 2012Q1

REPORT INFORMATION
  Report Type: 
  Country: None (occurrence: None)
  Receive Date: 20120127
  Receipt Date: 20120124
  Transmission Date: 20120608
  Serious: Yes (Other)
  Sender: FDA-Public Use
  Company Number: CHPA2012US001899

PATIENT
  Age: 53 Year
  Sex: Female

DRUGS (1)
  1. EXCEDRIN (MIGRAINE) [Suspect]
     Dosage: UNK, UNK
     Route: 048

REACTIONS (3)
  - ROAD TRAFFIC ACCIDENT [None]
  - CONVULSION [None]
  - OPIATES POSITIVE [None]
